FAERS Safety Report 25739941 (Version 2)
Quarter: 2025Q3

REPORT INFORMATION
  Report Type: Spontaneous
  Country: EU (occurrence: EU)
  Receive Date: 20250829
  Receipt Date: 20250913
  Transmission Date: 20251020
  Serious: Yes (Hospitalization, Other)
  Sender: AUROBINDO
  Company Number: EU-MLMSERVICE-20250811-PI609752-00108-1

PATIENT
  Age: 13 Year
  Sex: Female

DRUGS (21)
  1. CLOZAPINE [Suspect]
     Active Substance: CLOZAPINE
     Indication: Bipolar disorder
     Dosage: 100 MILLIGRAM, ONCE A DAY
     Route: 065
     Dates: start: 20220320
  2. CLOZAPINE [Suspect]
     Active Substance: CLOZAPINE
     Dosage: CLOZAPINE WAS INITIATED AND TITRATED UP TO 100 MG IN APPROXIMATELY 10 DAYS
     Route: 065
     Dates: start: 20220330, end: 20220418
  3. CLOZAPINE [Suspect]
     Active Substance: CLOZAPINE
     Dosage: CLOZAPINE WAS ADMINISTERED B.I.D., WITH SLOW WEEKLY INCREMENTS OF 12.5 MG/D
     Route: 065
     Dates: start: 20220826, end: 20220902
  4. CLOZAPINE [Suspect]
     Active Substance: CLOZAPINE
     Dosage: SLOW WEEKLY INCREMENTS OF 12.5 MG/D
     Route: 065
     Dates: start: 20220902, end: 20220909
  5. CLOZAPINE [Suspect]
     Active Substance: CLOZAPINE
     Dosage: SLOW WEEKLY INCREMENTS OF 12.5 MG/D
     Route: 065
     Dates: start: 20220909, end: 20220916
  6. CLOZAPINE [Suspect]
     Active Substance: CLOZAPINE
     Dosage: SLOW WEEKLY INCREMENTS OF 12.5 MG/D
     Route: 065
     Dates: start: 20220916, end: 20220923
  7. CLOZAPINE [Suspect]
     Active Substance: CLOZAPINE
     Dosage: SLOW WEEKLY INCREMENTS OF 12.5 MG/D
     Route: 065
     Dates: start: 20220923, end: 20220930
  8. CLOZAPINE [Suspect]
     Active Substance: CLOZAPINE
     Dosage: SLOW WEEKLY INCREMENTS OF 12.5 MG/D
     Route: 065
     Dates: start: 20220930, end: 20221007
  9. CLOZAPINE [Suspect]
     Active Substance: CLOZAPINE
     Dosage: SLOW WEEKLY INCREMENTS OF 12.5 MG/D
     Route: 065
     Dates: start: 20221007, end: 20221014
  10. CLOZAPINE [Suspect]
     Active Substance: CLOZAPINE
     Dosage: SLOW WEEKLY INCREMENTS OF 12.5 MG/D
     Route: 065
     Dates: start: 20221014, end: 20221024
  11. CLOZAPINE [Suspect]
     Active Substance: CLOZAPINE
     Dosage: SLOW WEEKLY INCREMENTS OF 12.5 MG/D
     Route: 065
     Dates: start: 20221024, end: 20221027
  12. CLOZAPINE [Suspect]
     Active Substance: CLOZAPINE
     Dosage: SLOW WEEKLY INCREMENTS OF 12.5 MG/D
     Route: 065
     Dates: start: 20221027
  13. DELORAZEPAM [Suspect]
     Active Substance: DELORAZEPAM
     Indication: Product used for unknown indication
     Dosage: 45 MILLIGRAM, ONCE A DAY
     Route: 065
  14. HALOPERIDOL [Concomitant]
     Active Substance: HALOPERIDOL
     Indication: Bipolar I disorder
     Dosage: 3 MILLIGRAM, ONCE A DAY
     Route: 065
     Dates: start: 2022
  15. HALOPERIDOL [Concomitant]
     Active Substance: HALOPERIDOL
     Dosage: REDUCTION OF DOSE, MAINTAINED AT THIS DOSAGE THEREAFTER
     Route: 065
     Dates: start: 2022
  16. HALOPERIDOL [Concomitant]
     Active Substance: HALOPERIDOL
     Dosage: 1.5 MILLIGRAM, ONCE A DAY
     Route: 065
     Dates: start: 2022
  17. BISOPROLOL [Concomitant]
     Active Substance: BISOPROLOL
     Indication: Mitral valve incompetence
     Dosage: 12.5 MILLIGRAM, ONCE A DAY
     Route: 065
     Dates: start: 20220404
  18. BISOPROLOL [Concomitant]
     Active Substance: BISOPROLOL
     Indication: Pericardial effusion
  19. LURASIDONE [Concomitant]
     Active Substance: LURASIDONE
     Indication: Psychomotor hyperactivity
     Dosage: 111 MILLIGRAM, ONCE A DAY
     Route: 065
     Dates: start: 202207, end: 2022
  20. LURASIDONE [Concomitant]
     Active Substance: LURASIDONE
     Dosage: 37 MILLIGRAM, ONCE A DAY
     Route: 065
  21. LURASIDONE [Concomitant]
     Active Substance: LURASIDONE
     Dosage: 74 MILLIGRAM, ONCE A DAY
     Route: 065

REACTIONS (6)
  - Pericardial effusion [Recovered/Resolved]
  - Mitral valve incompetence [Recovered/Resolved]
  - Myocarditis [Recovered/Resolved]
  - Pericarditis [Recovering/Resolving]
  - Drug ineffective [Recovered/Resolved]
  - Weight increased [Unknown]

NARRATIVE: CASE EVENT DATE: 20220101
